FAERS Safety Report 12803802 (Version 2)
Quarter: 2019Q2

REPORT INFORMATION
  Report Type: Spontaneous
  Country: JP (occurrence: JP)
  Receive Date: 20161003
  Receipt Date: 20190410
  Transmission Date: 20190711
  Serious: Yes (Death, Other)
  Sender: FDA-Public Use
  Company Number: JP-SA-2016SA178728

PATIENT
  Age: 62 Year
  Sex: Female

DRUGS (24)
  1. CALCIUM LEVOFOLINATE [Suspect]
     Active Substance: LEVOLEUCOVORIN CALCIUM
     Indication: RECTAL CANCER
     Dosage: 1 DF,QD
     Route: 042
     Dates: start: 201201, end: 201309
  2. CALCIUM LEVOFOLINATE [Suspect]
     Active Substance: LEVOLEUCOVORIN CALCIUM
     Indication: METASTASES TO LIVER
  3. OXALIPLATIN. [Suspect]
     Active Substance: OXALIPLATIN
     Indication: RECTAL CANCER
     Dosage: 85 MG/M2,QCY
     Route: 042
     Dates: start: 201201, end: 201206
  4. 5 FU [Suspect]
     Active Substance: FLUOROURACIL
     Indication: RECTAL CANCER STAGE III
     Dosage: 400 MG/M2,UNK
     Dates: start: 201302
  5. VECTIBIX [Suspect]
     Active Substance: PANITUMUMAB
     Indication: RECTAL CANCER
     Dosage: 6 MG/KG,QD
     Route: 042
     Dates: start: 201201, end: 201206
  6. IRINOTECAN [Suspect]
     Active Substance: IRINOTECAN
     Indication: RECTAL CANCER
     Dosage: UNK UNK,QCY
     Route: 041
     Dates: start: 201109
  7. IRINOTECAN [Suspect]
     Active Substance: IRINOTECAN
     Indication: METASTASES TO LIVER
     Dosage: 120 MG/M2,QCY
     Route: 041
     Dates: start: 201206
  8. FOLINIC ACID [Suspect]
     Active Substance: LEUCOVORIN
     Indication: RECTAL CANCER STAGE III
     Dosage: UNK UNK,QCY
     Route: 065
     Dates: start: 201201, end: 201206
  9. CARBOPLATIN. [Concomitant]
     Active Substance: CARBOPLATIN
     Indication: METASTASES TO LIVER
  10. SIMVASTATIN. [Suspect]
     Active Substance: SIMVASTATIN
     Indication: RECTAL CANCER
     Dosage: 5 MG/KG,UNK
     Route: 042
     Dates: start: 201206
  11. VECTIBIX [Suspect]
     Active Substance: PANITUMUMAB
     Indication: METASTASES TO LIVER
  12. FOLINIC ACID [Suspect]
     Active Substance: LEUCOVORIN
     Indication: METASTASES TO LIVER
     Dosage: UNK UNK,UNK
     Route: 065
     Dates: start: 201106
  13. FOLINIC ACID [Suspect]
     Active Substance: LEUCOVORIN
     Indication: NEUROENDOCRINE CARCINOMA METASTATIC
  14. 5 FU [Suspect]
     Active Substance: FLUOROURACIL
     Indication: RECTAL CANCER
     Dosage: 400 MG/M2,UNK
     Route: 040
     Dates: start: 201201, end: 201206
  15. VECTIBIX [Suspect]
     Active Substance: PANITUMUMAB
     Indication: RECTAL CANCER STAGE III
  16. CARBOPLATIN. [Concomitant]
     Active Substance: CARBOPLATIN
     Indication: RECTAL CANCER
     Dosage: UNK
     Dates: start: 201109, end: 201201
  17. IRINOTECAN [Suspect]
     Active Substance: IRINOTECAN
     Dosage: UNK UNK,UNK
     Route: 065
     Dates: start: 201302
  18. OXALIPLATIN. [Suspect]
     Active Substance: OXALIPLATIN
     Indication: METASTASES TO LIVER
     Dosage: UNK UNK,QCY
     Route: 042
     Dates: start: 2012
  19. SIMVASTATIN. [Suspect]
     Active Substance: SIMVASTATIN
     Indication: METASTASES TO LIVER
     Dosage: 10 MG/KG,QCY
     Route: 042
  20. 5 FU [Suspect]
     Active Substance: FLUOROURACIL
     Indication: METASTASES TO LIVER
     Dosage: 600 MG/M2,UNK
     Route: 042
     Dates: start: 201201, end: 201206
  21. POLYSACCHARIDE-K [Concomitant]
     Active Substance: POLYSACCHARIDE-K
     Indication: RECTAL CANCER
     Dosage: UNK
     Dates: start: 201106
  22. SIMVASTATIN. [Suspect]
     Active Substance: SIMVASTATIN
     Dosage: UNK UNK,UNK
     Route: 065
     Dates: start: 201302
  23. 5 FU [Suspect]
     Active Substance: FLUOROURACIL
     Indication: NEUROENDOCRINE CARCINOMA METASTATIC
     Dosage: 2400 MG/M2,UNK
     Route: 042
     Dates: start: 201302
  24. VECTIBIX [Suspect]
     Active Substance: PANITUMUMAB
     Indication: NEUROENDOCRINE CARCINOMA METASTATIC

REACTIONS (5)
  - Neuropathy peripheral [Unknown]
  - Neutropenia [Unknown]
  - Dermatitis acneiform [Unknown]
  - Condition aggravated [Unknown]
  - Paronychia [Unknown]

NARRATIVE: CASE EVENT DATE: 2012
